FAERS Safety Report 11262232 (Version 3)
Quarter: 2018Q1

REPORT INFORMATION
  Report Type: Report from Study
  Country: None (occurrence: GB)
  Receive Date: 20150710
  Receipt Date: 20180309
  Transmission Date: 20180508
  Serious: Yes (Death, Hospitalization)
  Sender: FDA-Public Use
  Company Number: GB-ABBVIE-15K-167-1424856-00

PATIENT
  Age: 76 Year
  Sex: Female
  Weight: 49 kg

DRUGS (1)
  1. HUMIRA [Suspect]
     Active Substance: ADALIMUMAB
     Indication: RHEUMATOID ARTHRITIS
     Route: 058
     Dates: start: 20040318, end: 20051003

REACTIONS (3)
  - Cholelithiasis [Fatal]
  - Cardiac arrest [Fatal]
  - Biliary sepsis [Fatal]

NARRATIVE: CASE EVENT DATE: 20141020
